FAERS Safety Report 8439415-3 (Version None)
Quarter: 2012Q2

REPORT INFORMATION
  Report Type: 
  Country: None (occurrence: None)
  Receive Date: 20120615
  Receipt Date: 20120608
  Transmission Date: 20120825
  Serious: No
  Sender: FDA-Public Use
  Company Number: US-PFIZER INC-2012136846

PATIENT
  Sex: Male
  Weight: 99.773 kg

DRUGS (2)
  1. LYRICA [Suspect]
     Indication: NEUROPATHY PERIPHERAL
     Dosage: 75 MG, 2X/DAY
     Route: 048
     Dates: start: 20120101, end: 20120101
  2. LISINOPRIL [Concomitant]
     Indication: HYPERTENSION
     Dosage: UNK

REACTIONS (11)
  - RESTLESSNESS [None]
  - CONDITION AGGRAVATED [None]
  - DRUG INEFFECTIVE [None]
  - ACTIVITIES OF DAILY LIVING IMPAIRED [None]
  - MALAISE [None]
  - FEELING ABNORMAL [None]
  - INSOMNIA [None]
  - BLOOD CHOLESTEROL INCREASED [None]
  - HEADACHE [None]
  - OROPHARYNGEAL PAIN [None]
  - HYPERTENSION [None]
